FAERS Safety Report 5055048-3 (Version None)
Quarter: 2006Q3

REPORT INFORMATION
  Report Type: 
  Country: None (occurrence: None)
  Receive Date: 20060719
  Receipt Date: 20060420
  Transmission Date: 20061208
  Serious: Yes (Other)
  Sender: FDA-Public Use
  Company Number: PHFR2006GB01501

PATIENT
  Age: 53 Year
  Sex: Male

DRUGS (9)
  1. BENZODIAZEPINES [Concomitant]
     Route: 065
  2. CLOZARIL [Suspect]
     Indication: SCHIZOPHRENIA
     Dosage: 325MG / DAY
     Route: 048
     Dates: start: 20050223, end: 20060415
  3. VALPROATE SODIUM [Suspect]
     Indication: MOOD ALTERED
     Dosage: 400MG / DAY
     Route: 048
     Dates: start: 20060323, end: 20060413
  4. LITHIUM CARBONATE [Concomitant]
     Indication: MOOD ALTERED
     Dosage: 800MG / DAY
     Route: 048
  5. PIZOTIFEN [Concomitant]
     Indication: MIGRAINE
     Dosage: 1.5MG / DAY
     Route: 048
  6. MOVICOL [Concomitant]
     Route: 065
  7. FYBOGEL [Concomitant]
     Route: 065
  8. HYOSCINE HBR HYT [Concomitant]
     Indication: SALIVARY HYPERSECRETION
     Dosage: 300MCG / DAY
     Route: 048
  9. DOCUSATE SODIUM [Concomitant]
     Route: 065

REACTIONS (3)
  - LOWER RESPIRATORY TRACT INFECTION [None]
  - NEUTROPENIA [None]
  - WHITE BLOOD CELL COUNT DECREASED [None]
